FAERS Safety Report 9806710 (Version 1)
Quarter: 2014Q1

REPORT INFORMATION
  Report Type: Spontaneous
  Country: US (occurrence: US)
  Receive Date: 20140109
  Receipt Date: 20140109
  Transmission Date: 20141002
  Serious: No
  Sender: FDA-Public Use
  Company Number: US-ENDO PHARMACEUTICALS INC.-FORT20130385

PATIENT
  Age: 65 Year
  Sex: Male

DRUGS (7)
  1. FORTESTA [Suspect]
     Indication: HORMONE REPLACEMENT THERAPY
     Route: 061
     Dates: start: 20131114
  2. COPAXONE [Concomitant]
     Indication: MULTIPLE SCLEROSIS
  3. ADDERALL [Concomitant]
     Indication: MULTIPLE SCLEROSIS
     Route: 048
  4. VENLAFAXINE [Concomitant]
     Indication: MULTIPLE SCLEROSIS
     Route: 048
  5. GABAPENTIN [Concomitant]
     Indication: MULTIPLE SCLEROSIS
     Dosage: UNK
     Route: 048
  6. PANTOPRAZOLE [Concomitant]
     Indication: HIATUS HERNIA
     Route: 048
  7. TAMSULOSIN [Concomitant]
     Indication: URINARY RETENTION
     Route: 048

REACTIONS (3)
  - Application site fissure [Not Recovered/Not Resolved]
  - Incorrect dose administered [Recovered/Resolved]
  - Underdose [Recovered/Resolved]
